FAERS Safety Report 16075502 (Version 2)
Quarter: 2019Q2

REPORT INFORMATION
  Report Type: Spontaneous
  Country: CN (occurrence: CN)
  Receive Date: 20190315
  Receipt Date: 20190404
  Transmission Date: 20190711
  Serious: Yes (Other)
  Sender: FDA-Public Use
  Company Number: CN-ROCHE-2281440

PATIENT
  Age: 68 Year
  Sex: Female

DRUGS (11)
  1. PACLITAXEL. [Concomitant]
     Active Substance: PACLITAXEL
     Indication: BREAST CANCER
     Dosage: ON DAY 1
     Route: 041
     Dates: start: 20181205, end: 20190215
  2. COMPOUND GLYCYRRHIZIN INJECTION (AMINOACETIC ACID/CYSTEINE HYDROCHLORI [Concomitant]
     Route: 041
     Dates: start: 20190227, end: 20190306
  3. CYCLOPHOSPHAMIDE. [Concomitant]
     Active Substance: CYCLOPHOSPHAMIDE
     Indication: BREAST CANCER
     Dosage: ON DAY 2
     Route: 042
     Dates: start: 20181205, end: 20190215
  4. MAGNESIUM ISOGLYCYRRHIZINATE [Concomitant]
     Active Substance: MAGNESIUM ISOGLYCYRRHIZINATE
     Route: 041
     Dates: start: 20190306, end: 20190309
  5. URSODESOXYCHOLIC ACID [Concomitant]
     Active Substance: URSODIOL
     Route: 065
     Dates: start: 20190309, end: 20190309
  6. HERCEPTIN [Suspect]
     Active Substance: TRASTUZUMAB
     Indication: HER-2 POSITIVE BREAST CANCER
     Dosage: ON DAY 0
     Route: 041
     Dates: start: 20181205, end: 20190215
  7. PIRARUBICIN [Concomitant]
     Active Substance: PIRARUBICIN
     Dosage: ON DAY 1
     Route: 042
     Dates: start: 20181205, end: 20190215
  8. BICYCLOL [Concomitant]
     Active Substance: BICYCLOL
     Dosage: 50MG*18 TABLET
     Route: 048
     Dates: start: 20190303, end: 20190306
  9. ADEMETIONINE [Concomitant]
     Active Substance: ADEMETIONINE
     Route: 041
     Dates: start: 20190309, end: 20190312
  10. HUMAN ALBUMIN [Concomitant]
     Active Substance: ALBUMIN HUMAN
     Dosage: 10G: 50ML
     Route: 041
     Dates: start: 20190309, end: 20190312
  11. ADEMETIONINE [Concomitant]
     Active Substance: ADEMETIONINE
     Route: 041
     Dates: start: 20190306, end: 20190309

REACTIONS (3)
  - Gastrointestinal disorder [Unknown]
  - Jaundice [Unknown]
  - Liver injury [Unknown]
